FAERS Safety Report 7956360-8 (Version None)
Quarter: 2011Q4

REPORT INFORMATION
  Report Type: 
  Country: None (occurrence: None)
  Receive Date: 20111205
  Receipt Date: 20111124
  Transmission Date: 20120403
  Serious: Yes (Life-Threatening, Hospitalization, Other)
  Sender: FDA-Public Use
  Company Number: CZ-PFIZER INC-2011291572

PATIENT
  Age: 48 Year
  Sex: Male

DRUGS (1)
  1. TORISEL [Suspect]
     Dosage: 25 MG/ML, UNK

REACTIONS (6)
  - DYSPNOEA [None]
  - VERTIGO [None]
  - CYANOSIS [None]
  - HYPERTENSION [None]
  - FEELING HOT [None]
  - TACHYCARDIA [None]
